FAERS Safety Report 9326116 (Version 1)
Quarter: 2013Q2

REPORT INFORMATION
  Report Type: Spontaneous
  Country: IT (occurrence: IT)
  Receive Date: 20130604
  Receipt Date: 20130604
  Transmission Date: 20140414
  Serious: Yes (Other)
  Sender: FDA-Public Use
  Company Number: IT-ROXANE LABORATORIES, INC.-2013-RO-00863RO

PATIENT
  Age: 11 Year
  Sex: Male

DRUGS (3)
  1. RISPERIDONE [Suspect]
     Indication: PSYCHOTIC DISORDER
  2. SERTRALINE [Suspect]
     Indication: PSYCHOTIC DISORDER
  3. VALPROIC ACID [Suspect]
     Indication: PSYCHOTIC DISORDER

REACTIONS (2)
  - Dyslipidaemia [Recovered/Resolved]
  - Weight increased [Unknown]
